FAERS Safety Report 17598586 (Version 1)
Quarter: 2020Q1

REPORT INFORMATION
  Report Type: Spontaneous
  Country: US (occurrence: US)
  Receive Date: 20200329
  Receipt Date: 20200329
  Transmission Date: 20200409
  Serious: Yes (Other)
  Sender: FDA-Public Use
  Company Number: None

PATIENT
  Age: 18 Year
  Sex: Female
  Weight: 65.25 kg

DRUGS (7)
  1. EMGALITY [Suspect]
     Active Substance: GALCANEZUMAB-GNLM
     Indication: MIGRAINE
     Dosage: ?          QUANTITY:2 INJECTION(S);OTHER FREQUENCY:1 X MONTHLY;?
     Route: 058
     Dates: start: 20200215, end: 20200216
  2. MAGNESIUM [Concomitant]
     Active Substance: MAGNESIUM
  3. ALLEGRA [Concomitant]
     Active Substance: FEXOFENADINE HYDROCHLORIDE
  4. OMEGA 3 [Concomitant]
     Active Substance: OMEGA-3 FATTY ACIDS
  5. ALIGN [Concomitant]
     Active Substance: BIFIDOBACTERIUM LONGUM SUBSP. INFANTIS
  6. TYLONEL [Concomitant]
  7. ADVIL [Concomitant]
     Active Substance: IBUPROFEN

REACTIONS (3)
  - Rash [None]
  - Injection site pain [None]
  - Burning sensation [None]

NARRATIVE: CASE EVENT DATE: 20200215
